FAERS Safety Report 23449042 (Version 5)
Quarter: 2025Q4

REPORT INFORMATION
  Report Type: Report from Study
  Country: US (occurrence: US)
  Receive Date: 20240128
  Receipt Date: 20251111
  Transmission Date: 20260117
  Serious: Yes (Other)
  Sender: ABBVIE
  Company Number: US-ABBVIE-5445627

PATIENT
  Age: 66 Year
  Sex: Female
  Weight: 72.574 kg

DRUGS (4)
  1. RINVOQ [Suspect]
     Active Substance: UPADACITINIB
     Indication: Colitis ulcerative
     Route: 048
  2. RINVOQ [Suspect]
     Active Substance: UPADACITINIB
     Indication: Colitis ulcerative
     Route: 048
  3. RINVOQ [Suspect]
     Active Substance: UPADACITINIB
     Indication: Colitis ulcerative
     Route: 048
     Dates: start: 202306
  4. RINVOQ [Suspect]
     Active Substance: UPADACITINIB
     Indication: Colitis ulcerative
     Route: 048
     Dates: start: 202307

REACTIONS (25)
  - Arthralgia [Not Recovered/Not Resolved]
  - Glossitis [Recovering/Resolving]
  - Lip erythema [Not Recovered/Not Resolved]
  - Inflammation [Not Recovered/Not Resolved]
  - Pruritus [Unknown]
  - Pain in extremity [Recovering/Resolving]
  - Osteitis [Recovering/Resolving]
  - Lice infestation [Unknown]
  - Chills [Unknown]
  - Skin exfoliation [Recovering/Resolving]
  - Peripheral swelling [Unknown]
  - Headache [Not Recovered/Not Resolved]
  - Bone contusion [Unknown]
  - Arthritis [Unknown]
  - Dizziness [Unknown]
  - Fatigue [Unknown]
  - Rash [Not Recovered/Not Resolved]
  - Hordeolum [Unknown]
  - Abdominal pain upper [Unknown]
  - Back disorder [Unknown]
  - Visual impairment [Unknown]
  - Blister [Unknown]
  - Ulcer haemorrhage [Unknown]
  - Wound haemorrhage [Unknown]
  - Vision blurred [Not Recovered/Not Resolved]

NARRATIVE: CASE EVENT DATE: 20230101
